FAERS Safety Report 26123381 (Version 1)
Quarter: 2025Q4

REPORT INFORMATION
  Report Type: Spontaneous
  Country: AR (occurrence: AR)
  Receive Date: 20251204
  Receipt Date: 20251204
  Transmission Date: 20260118
  Serious: Yes (Other)
  Sender: SANDOZ
  Company Number: AR-SANDOZ-SDZ2025AR026451

PATIENT
  Age: 64 Year
  Sex: Female

DRUGS (1)
  1. HYRIMOZ [Suspect]
     Active Substance: ADALIMUMAB-ADAZ
     Indication: Rheumatoid arthritis
     Dosage: DOSAGE: 40, FREQUENCY: 2, [40MG /0.8ML PREFILLED PENS X 2]
     Route: 058
     Dates: start: 20240419, end: 20251130

REACTIONS (3)
  - Diabetes mellitus [Unknown]
  - Bronchitis [Unknown]
  - Therapeutic product effect incomplete [Unknown]

NARRATIVE: CASE EVENT DATE: 20250420
